FAERS Safety Report 8995557 (Version 1)
Quarter: 2013Q1

REPORT INFORMATION
  Report Type: Spontaneous
  Country: US (occurrence: US)
  Receive Date: 20130103
  Receipt Date: 20130103
  Transmission Date: 20140127
  Serious: No
  Sender: FDA-Public Use
  Company Number: US-ABBOTT-12P-163-1022900-00

PATIENT
  Age: 52 Year
  Sex: Female

DRUGS (3)
  1. SYNTHROID [Suspect]
     Indication: HYPOTHYROIDISM
  2. SYNTHROID [Suspect]
     Dates: end: 201210
  3. SYNTHROID [Suspect]
     Dosage: 2.5 TABLETS DAILY
     Dates: start: 201210

REACTIONS (1)
  - Blood thyroid stimulating hormone increased [Unknown]
